FAERS Safety Report 17661886 (Version 1)
Quarter: 2020Q2

REPORT INFORMATION
  Report Type: Spontaneous
  Country: US (occurrence: US)
  Receive Date: 20200413
  Receipt Date: 20200413
  Transmission Date: 20200713
  Serious: No
  Sender: FDA-Public Use
  Company Number: None

PATIENT
  Age: 88 Year
  Sex: Female
  Weight: 72 kg

DRUGS (14)
  1. PRESERVISION AREDS, ORAL [Concomitant]
  2. DEXAMETHASONE 0.5MG, ORAL [Concomitant]
  3. REVLIMID 10MG, ORAL [Concomitant]
     Dates: start: 20180521, end: 20180530
  4. ACTAMINOPHEN, ORAL [Concomitant]
  5. PROCHLORPERAZINE, 10MG, ORAL [Concomitant]
  6. REVLIMID 2.5MG, ORAL [Concomitant]
     Dates: start: 20190508, end: 20200130
  7. REVLIMID 5MG, ORAL [Concomitant]
     Dates: start: 20180521, end: 20190508
  8. NINLARO [Suspect]
     Active Substance: IXAZOMIB CITRATE
     Indication: PLASMA CELL MYELOMA
     Route: 048
     Dates: start: 20200220, end: 20200413
  9. HYDROCHLOROTHIAZIDE 25MG, ORAL [Concomitant]
  10. TRAMADOL 50MG, ORAL [Concomitant]
  11. HYDROCODONE - ACETAMINOPHEN, 5-325MG, ORAL [Concomitant]
  12. ASPIRIN 81MG, ORAL [Concomitant]
  13. KLONOPIN 0.5MG,ORAL [Concomitant]
  14. XGEVA 120MG/1.7ML, SQ [Concomitant]

REACTIONS (1)
  - Neutropenia [None]

NARRATIVE: CASE EVENT DATE: 20200413
